FAERS Safety Report 6311194-5 (Version None)
Quarter: 2009Q3

REPORT INFORMATION
  Report Type: 
  Country: None (occurrence: None)
  Receive Date: 20090817
  Receipt Date: 20090810
  Transmission Date: 20100115
  Serious: Yes (Hospitalization, Other)
  Sender: FDA-Public Use
  Company Number: ES-ROXANE LABORATORIES, INC.-2009-RO-00808RO

PATIENT
  Age: 70 Year
  Sex: Male

DRUGS (7)
  1. ZOLPIDEM [Suspect]
     Indication: INSOMNIA
  2. ZOLPIDEM [Suspect]
  3. FUROSEMIDE [Suspect]
     Dosage: 40 MG
  4. BISOPROLOL [Suspect]
     Dosage: 5 MG
  5. ENALAPRIL MALEATE [Suspect]
     Dosage: 20 MG
  6. CORTICOSTEROIDS [Concomitant]
     Indication: DERMATITIS EXFOLIATIVE
  7. ANTIHISTAMINES [Concomitant]
     Indication: DERMATITIS EXFOLIATIVE

REACTIONS (3)
  - DERMATITIS EXFOLIATIVE [None]
  - INSOMNIA [None]
  - OEDEMA PERIPHERAL [None]
